FAERS Safety Report 8048158-X (Version None)
Quarter: 2012Q1

REPORT INFORMATION
  Report Type: 
  Country: None (occurrence: None)
  Receive Date: 20120113
  Receipt Date: 20120113
  Transmission Date: 20120608
  Serious: Yes (Other)
  Sender: FDA-Public Use
  Company Number: None

PATIENT
  Sex: Male

DRUGS (1)
  1. KRYSTEXXA [Suspect]
     Dosage: 8MG  EVRY 2 WEEKS IV
     Route: 042
     Dates: start: 20111207, end: 20111227

REACTIONS (5)
  - ERYTHEMA [None]
  - DYSPNOEA [None]
  - PRURITUS [None]
  - CHEST PAIN [None]
  - INFUSION RELATED REACTION [None]
